FAERS Safety Report 4755158-1 (Version None)
Quarter: 2005Q3

REPORT INFORMATION
  Report Type: 
  Country: None (occurrence: None)
  Receive Date: 20050829
  Receipt Date: 20050818
  Transmission Date: 20060218
  Serious: Yes (Other)
  Sender: FDA-Public Use
  Company Number: US-JNJFOC-20050804710

PATIENT
  Sex: Female
  Weight: 82.56 kg

DRUGS (7)
  1. REMICADE [Suspect]
     Indication: CROHN'S DISEASE
     Dosage: HAD ONE INFUSION 2 2/1 YEARS AGO.
     Route: 042
  2. QUESTRAN [Concomitant]
  3. ASACOL [Concomitant]
  4. B 12 [Concomitant]
     Route: 050
  5. PREVACID [Concomitant]
  6. REGLAN [Concomitant]
  7. SALSALATE [Concomitant]

REACTIONS (2)
  - DIABETES MELLITUS NON-INSULIN-DEPENDENT [None]
  - GOUT [None]
